FAERS Safety Report 5234239-2 (Version None)
Quarter: 2007Q1

REPORT INFORMATION
  Report Type: 
  Country: None (occurrence: None)
  Receive Date: 20070209
  Receipt Date: 20070131
  Transmission Date: 20070707
  Serious: Yes (Other)
  Sender: FDA-Public Use
  Company Number: DE-SOLVAY-00307000336

PATIENT
  Sex: Male

DRUGS (3)
  1. OMEPRAZOLE [Concomitant]
     Indication: ILL-DEFINED DISORDER
     Dosage: DAILY DOSE:  UNKNOWN
     Route: 048
  2. OMEPRAZOLE [Concomitant]
     Dosage: DAILY DOSE:  UNKNOWN
     Route: 042
  3. CREON [Suspect]
     Indication: ILL-DEFINED DISORDER
     Dosage: DAILY DOSE:  UNKNOWN
     Route: 065

REACTIONS (2)
  - GASTRIC ULCER [None]
  - OBSTRUCTION GASTRIC [None]
